FAERS Safety Report 8488916-0 (Version None)
Quarter: 2012Q3

REPORT INFORMATION
  Report Type: 
  Country: None (occurrence: None)
  Receive Date: 20120705
  Receipt Date: 20120625
  Transmission Date: 20120928
  Serious: Yes (Death)
  Sender: FDA-Public Use
  Company Number: US-ROCHE-1083291

PATIENT

DRUGS (2)
  1. CELLCEPT [Suspect]
     Indication: SYSTEMIC SCLEROSIS
     Dosage: FOR 3 TO 4 WEEKS
     Route: 065
  2. CELLCEPT [Suspect]
     Dosage: DOSE: 1-1.5 GRAM
     Route: 065

REACTIONS (1)
  - CONGESTIVE CARDIOMYOPATHY [None]
